FAERS Safety Report 4462042-X (Version None)
Quarter: 2004Q3

REPORT INFORMATION
  Report Type: 
  Country: None (occurrence: None)
  Receive Date: 20040929
  Receipt Date: 20040817
  Transmission Date: 20050211
  Serious: Yes (Hospitalization)
  Sender: FDA-Public Use
  Company Number: US-AMGEN-US087742

PATIENT
  Sex: Female
  Weight: 98.1 kg

DRUGS (1)
  1. PROCRIT [Suspect]
     Indication: ANAEMIA OF MALIGNANT DISEASE
     Route: 058
     Dates: start: 20040730, end: 20040730

REACTIONS (2)
  - RASH VESICULAR [None]
  - WOUND SECRETION [None]
